FAERS Safety Report 9885755 (Version 1)
Quarter: 2013Q2

REPORT INFORMATION
  Report Type: Spontaneous
  Country: US (occurrence: None)
  Receive Date: 20121023
  Receipt Date: 20121023
  Transmission Date: 20140414
  Serious: Yes (Other)
  Sender: FDA-Public Use
  Company Number: 2012SP026952KS

PATIENT
  Age: 66 Year
  Sex: Male

DRUGS (3)
  1. BCG VACCINE [Suspect]
  2. PLAVIX [Concomitant]
  3. LISINOPRIL [Concomitant]

REACTIONS (5)
  - Renal pain [None]
  - Chills [None]
  - Nausea [None]
  - Vomiting [None]
  - Fatigue [None]
